FAERS Safety Report 19593154 (Version 1)
Quarter: 2021Q3

REPORT INFORMATION
  Report Type: Spontaneous
  Country: US (occurrence: US)
  Receive Date: 20210722
  Receipt Date: 20210722
  Transmission Date: 20211014
  Serious: No
  Sender: FDA-Public Use
  Company Number: US-GLAXOSMITHKLINE-USCH2021047035

PATIENT
  Age: 55 Year
  Sex: Female

DRUGS (1)
  1. ALLI [Suspect]
     Active Substance: ORLISTAT
     Indication: WEIGHT DECREASED
     Dosage: 6 DF, QD
     Dates: start: 20210703, end: 20210719

REACTIONS (2)
  - Drug ineffective [Unknown]
  - Extra dose administered [Unknown]
